FAERS Safety Report 20034951 (Version 1)
Quarter: 2021Q4

REPORT INFORMATION
  Report Type: Spontaneous
  Country: FR (occurrence: FR)
  Receive Date: 20211104
  Receipt Date: 20211104
  Transmission Date: 20220303
  Serious: Yes (Life-Threatening, Other)
  Sender: FDA-Public Use
  Company Number: None

PATIENT
  Age: 53 Year
  Sex: Female

DRUGS (9)
  1. VANCOMYCIN [Suspect]
     Active Substance: VANCOMYCIN
     Indication: Anaesthesia procedure
     Dosage: 1200 MILLIGRAM
     Route: 041
     Dates: start: 20180816, end: 20180816
  2. SIMVASTATIN [Concomitant]
     Active Substance: SIMVASTATIN
     Dosage: UNK
  3. SUFENTANIL [Concomitant]
     Active Substance: SUFENTANIL
     Dosage: UNK
  4. KETAMINE [Concomitant]
     Active Substance: KETAMINE
     Dosage: UNK
  5. PROPOFOL [Concomitant]
     Active Substance: PROPOFOL
     Dosage: UNK
  6. MIVACURIUM [Concomitant]
     Active Substance: MIVACURIUM
     Dosage: UNK
  7. EPHEDRINE HYDROCHLORIDE [Concomitant]
     Active Substance: EPHEDRINE HYDROCHLORIDE
     Dosage: UNK
  8. LEVOTHYROXINE [Concomitant]
     Active Substance: LEVOTHYROXINE
     Dosage: UNK
  9. PANTOPRAZOLE [Concomitant]
     Active Substance: PANTOPRAZOLE
     Dosage: UNK

REACTIONS (1)
  - Anaphylactic shock [Recovered/Resolved]

NARRATIVE: CASE EVENT DATE: 20180816
